FAERS Safety Report 25020389 (Version 1)
Quarter: 2025Q1

REPORT INFORMATION
  Report Type: Spontaneous
  Country: DE (occurrence: DE)
  Receive Date: 20250227
  Receipt Date: 20250227
  Transmission Date: 20250408
  Serious: Yes (Other)
  Sender: DAIICHI
  Company Number: DE-DSJP-DS-2025-126435-DE

PATIENT
  Age: 34 Year
  Sex: Female

DRUGS (7)
  1. TRASTUZUMAB DERUXTECAN [Suspect]
     Active Substance: TRASTUZUMAB DERUXTECAN
     Indication: Breast cancer metastatic
     Route: 065
  2. BEVACIZUMAB [Suspect]
     Active Substance: BEVACIZUMAB
     Indication: Breast cancer metastatic
     Route: 065
     Dates: start: 2023
  3. CAPECITABINE [Suspect]
     Active Substance: CAPECITABINE
     Indication: Breast cancer
     Route: 065
     Dates: end: 20210324
  4. DENOSUMAB [Concomitant]
     Active Substance: DENOSUMAB
     Indication: Breast cancer metastatic
     Route: 065
     Dates: start: 202404
  5. PACLITAXEL [Concomitant]
     Active Substance: PACLITAXEL
     Indication: Breast cancer metastatic
     Route: 065
  6. PACLITAXEL [Concomitant]
     Active Substance: PACLITAXEL
     Indication: Breast cancer
     Route: 065
     Dates: start: 2023
  7. CARBOPLATIN [Concomitant]
     Active Substance: CARBOPLATIN
     Indication: Breast cancer
     Route: 065

REACTIONS (3)
  - Metastases to lung [Unknown]
  - Pyrexia [Recovered/Resolved]
  - Malaise [Recovering/Resolving]

NARRATIVE: CASE EVENT DATE: 20230201
